FAERS Safety Report 8111913-1 (Version None)
Quarter: 2012Q1

REPORT INFORMATION
  Report Type: 
  Country: None (occurrence: None)
  Receive Date: 20120202
  Receipt Date: 20120202
  Transmission Date: 20120608
  Serious: Yes (Life-Threatening)
  Sender: FDA-Public Use
  Company Number: None

PATIENT
  Age: 72 Year
  Sex: Male

DRUGS (1)
  1. ERBITUX [Suspect]
     Indication: OESOPHAGEAL CARCINOMA
     Dosage: 042

REACTIONS (6)
  - UNRESPONSIVE TO STIMULI [None]
  - RASH ERYTHEMATOUS [None]
  - HYPOPNOEA [None]
  - BLOOD PRESSURE DIASTOLIC DECREASED [None]
  - PRURITUS GENERALISED [None]
  - INFUSION RELATED REACTION [None]
